FAERS Safety Report 8831659 (Version 1)
Quarter: 2012Q4

REPORT INFORMATION
  Report Type: 
  Country: DE (occurrence: DE)
  Receive Date: 20121009
  Receipt Date: 20121009
  Transmission Date: 20130627
  Serious: Yes (Hospitalization)
  Sender: FDA-Public Use
  Company Number: DE-GLAXOSMITHKLINE-D0076632A

PATIENT
  Sex: Male
  Weight: 90 kg

DRUGS (10)
  1. ADARTREL [Suspect]
     Indication: RESTLESS LEGS SYNDROME
     Dosage: 2MG Per day
     Route: 065
     Dates: start: 201205, end: 201207
  2. ROCALTROL [Concomitant]
     Dosage: .25MCG Two times per week
     Route: 065
  3. DEKRISTOL [Concomitant]
     Dosage: 20MG Unknown
     Route: 065
  4. AQUAPHOR [Concomitant]
     Dosage: 40MG Per day
     Route: 065
  5. TORASEMIDE [Concomitant]
     Dosage: 150MG Per day
     Route: 065
  6. BISOPROLOL [Concomitant]
     Dosage: 2.5MG Single dose
     Route: 065
  7. LOSARTAN [Concomitant]
     Dosage: 100MG Per day
     Route: 065
  8. NEURONTIN [Concomitant]
     Dosage: 100MG Per day
     Route: 065
  9. MADOPAR DEPOT [Concomitant]
     Dosage: 125MG Per day
     Route: 065
  10. FOSRENOL [Concomitant]
     Route: 065

REACTIONS (2)
  - Syncope [Recovered/Resolved]
  - Presyncope [Recovered/Resolved]
